FAERS Safety Report 10247890 (Version 1)
Quarter: 2014Q2

REPORT INFORMATION
  Report Type: Report from Study
  Country: BR (occurrence: BR)
  Receive Date: 20140619
  Receipt Date: 20140619
  Transmission Date: 20141212
  Serious: Yes (Hospitalization, Other)
  Sender: FDA-Public Use
  Company Number: BR-ABBVIE-14P-020-1250145-00

PATIENT
  Sex: Female
  Weight: 67 kg

DRUGS (8)
  1. DEPAKENE [Suspect]
     Indication: EPILEPSY
  2. DEPAKOTE [Suspect]
     Indication: EPILEPSY
  3. DEPAKOTE ER [Suspect]
     Indication: EPILEPSY
     Dosage: IN THE MORNING AND AT NIGHT, DAILY DOSE: 1000 MILLIGRAM
     Dates: start: 201306
  4. PREDNISONE [Suspect]
     Indication: TRACHEITIS
  5. PREDNISONE [Suspect]
  6. TEGRETOL [Concomitant]
     Indication: PETIT MAL EPILEPSY
     Dosage: IN THE MORNING AND AT NIGHT, DAILY DOSE: 800 MILLIGRAM
  7. URBANIL [Concomitant]
     Indication: PETIT MAL EPILEPSY
  8. ALL OTHER THERAPEUTIC PRODUCTS [Concomitant]
     Indication: PRODUCT USED FOR UNKNOWN INDICATION

REACTIONS (13)
  - Brain operation [Unknown]
  - Petit mal epilepsy [Unknown]
  - Tracheitis [Unknown]
  - Tracheostomy [Unknown]
  - Dyspnoea [Unknown]
  - Choking [Unknown]
  - Tracheostomy [Unknown]
  - Dysphagia [Unknown]
  - Tracheostomy tube removal [Unknown]
  - Complication of device removal [Unknown]
  - Weight increased [Recovered/Resolved]
  - Vitamin D deficiency [Not Recovered/Not Resolved]
  - Malaise [Unknown]
